FAERS Safety Report 12094757 (Version 1)
Quarter: 2016Q1

REPORT INFORMATION
  Report Type: Spontaneous
  Country: DE (occurrence: DE)
  Receive Date: 20160219
  Receipt Date: 20160219
  Transmission Date: 20160526
  Serious: Yes (Other)
  Sender: FDA-Public Use
  Company Number: DE-BRISTOL-MYERS SQUIBB COMPANY-BMS-2016-010768

PATIENT
  Age: 70 Year
  Sex: Male

DRUGS (2)
  1. METAMIZOLE /06276704/ [Suspect]
     Active Substance: METAMIZOLE SODIUM
     Indication: PRODUCT USED FOR UNKNOWN INDICATION
     Route: 065
  2. NIVOLUMAB BMS [Suspect]
     Active Substance: NIVOLUMAB
     Indication: METASTATIC MALIGNANT MELANOMA
     Dosage: UNAV.
     Route: 065
     Dates: start: 201507, end: 201601

REACTIONS (3)
  - Agranulocytosis [Unknown]
  - Anal fissure [Unknown]
  - Cellulitis [Unknown]
